FAERS Safety Report 5507140-4 (Version None)
Quarter: 2007Q4

REPORT INFORMATION
  Report Type: 
  Country: None (occurrence: None)
  Receive Date: 20071102
  Receipt Date: 20071025
  Transmission Date: 20080405
  Serious: Yes (Death, Hospitalization)
  Sender: FDA-Public Use
  Company Number: 239205K07USA

PATIENT
  Age: 47 Year
  Sex: Female

DRUGS (3)
  1. REBIF [Suspect]
     Indication: MULTIPLE SCLEROSIS
     Dosage: 44 MCG, 3 IN 1 WEEKS, SUBCUTANEOUS
     Route: 058
     Dates: start: 20050523, end: 20071001
  2. TYLENOL (COTYLENOL) [Concomitant]
  3. IBUPROFEN [Concomitant]

REACTIONS (4)
  - CONFUSIONAL STATE [None]
  - HEPATIC FAILURE [None]
  - RENAL FAILURE [None]
  - SPEECH DISORDER [None]
